FAERS Safety Report 5800911-6 (Version None)
Quarter: 2008Q3

REPORT INFORMATION
  Report Type: 
  Country: None (occurrence: None)
  Receive Date: 20080701
  Receipt Date: 20080617
  Transmission Date: 20090109
  Serious: Yes (Death, Other)
  Sender: FDA-Public Use
  Company Number: 2008AL007442

PATIENT
  Age: 42 Year
  Sex: Female

DRUGS (7)
  1. TEMAZEPAM [Suspect]
     Dosage: PO
     Route: 048
  2. PAREGORIC LIQUID USP [Suspect]
     Dosage: PO
     Route: 048
  3. ETHANOL [Concomitant]
  4. COCAINE [Concomitant]
  5. CODEINE SUL TAB [Concomitant]
  6. DIAZEPAM [Suspect]
     Dosage: PO
     Route: 048
  7. FEVERALL (ACETAMINOPHNE RECTAL SUPPOSITORIES) [Suspect]
     Route: 054

REACTIONS (3)
  - COMPLETED SUICIDE [None]
  - DRUG ABUSE [None]
  - DRUG TOXICITY [None]
